FAERS Safety Report 18588929 (Version 1)
Quarter: 2020Q4

REPORT INFORMATION
  Report Type: Spontaneous
  Country: DE (occurrence: DE)
  Receive Date: 20201208
  Receipt Date: 20201208
  Transmission Date: 20210114
  Serious: Yes (Other)
  Sender: FDA-Public Use
  Company Number: DE-ROCHE-2724192

PATIENT
  Age: 32 Year
  Sex: Male

DRUGS (8)
  1. OXALIPLATIN. [Concomitant]
     Active Substance: OXALIPLATIN
  2. FOLINIC ACID [Concomitant]
     Active Substance: LEUCOVORIN
  3. CETUXIMAB. [Concomitant]
     Active Substance: CETUXIMAB
  4. XELODA [Suspect]
     Active Substance: CAPECITABINE
     Route: 048
     Dates: start: 201812, end: 201902
  5. TEYSUNO [Concomitant]
     Active Substance: GIMERACIL\OTERACIL\TEGAFUR
  6. IRINOTECAN [Concomitant]
     Active Substance: IRINOTECAN
  7. XELODA [Suspect]
     Active Substance: CAPECITABINE
     Indication: RECTAL CANCER
     Route: 048
  8. 5-FLUOROURACIL [Concomitant]
     Active Substance: FLUOROURACIL

REACTIONS (7)
  - Testicular oedema [Unknown]
  - Renal impairment [Not Recovered/Not Resolved]
  - Proteinuria [Unknown]
  - Lymphangiosis carcinomatosa [Unknown]
  - Drug ineffective [Unknown]
  - Rectal cancer [Unknown]
  - Rash [Unknown]
